FAERS Safety Report 11241829 (Version 1)
Quarter: 2015Q3

REPORT INFORMATION
  Report Type: Spontaneous
  Country: IN (occurrence: IN)
  Receive Date: 20150706
  Receipt Date: 20150706
  Transmission Date: 20151125
  Serious: Yes (Other)
  Sender: FDA-Public Use
  Company Number: IN-IMPAX LABORATORIES, INC-2015-IPXL-00714

PATIENT
  Age: 56 Year
  Sex: Male

DRUGS (1)
  1. CHLOROQUINE PHOSPHATE. [Suspect]
     Active Substance: CHLOROQUINE PHOSPHATE
     Indication: SYSTEMIC LUPUS ERYTHEMATOSUS
     Dosage: 2.6 MG/KG, DAILY
     Route: 065

REACTIONS (6)
  - Cataract subcapsular [Unknown]
  - Colour vision tests abnormal red-green [Unknown]
  - Visual acuity reduced [Not Recovered/Not Resolved]
  - Toxicity to various agents [Unknown]
  - Macular pigmentation [Unknown]
  - Nephropathy [Unknown]
